FAERS Safety Report 13966965 (Version 1)
Quarter: 2017Q3

REPORT INFORMATION
  Report Type: Spontaneous
  Country: US (occurrence: US)
  Receive Date: 20170914
  Receipt Date: 20170914
  Transmission Date: 20171128
  Serious: Yes (Other)
  Sender: FDA-Public Use
  Company Number: US-TEVA-773699USA

PATIENT
  Sex: Female

DRUGS (1)
  1. QUINAPRIL. [Suspect]
     Active Substance: QUINAPRIL
     Route: 065

REACTIONS (5)
  - Blood pressure increased [Unknown]
  - Intentional product use issue [Unknown]
  - Treatment noncompliance [Unknown]
  - Inappropriate schedule of drug administration [Unknown]
  - Myocardial infarction [Unknown]
